FAERS Safety Report 7399606-X (Version None)
Quarter: 2011Q2

REPORT INFORMATION
  Report Type: 
  Country: None (occurrence: None)
  Receive Date: 20110407
  Receipt Date: 20110301
  Transmission Date: 20111010
  Serious: Yes (Hospitalization)
  Sender: FDA-Public Use
  Company Number: US-BAYER-201038306NA

PATIENT
  Sex: Female
  Weight: 113.38 kg

DRUGS (5)
  1. NEXIUM [Concomitant]
  2. OCELLA [Suspect]
  3. CAMELLIA SINENSIS [Concomitant]
     Dosage: UNK
     Dates: start: 20071001, end: 20071001
  4. YASMIN [Suspect]
  5. YAZ [Suspect]
     Dosage: UNK UNK, QD
     Dates: start: 20070101

REACTIONS (6)
  - THROMBOSIS [None]
  - OEDEMA PERIPHERAL [None]
  - PAIN IN EXTREMITY [None]
  - HYPOAESTHESIA [None]
  - BACK PAIN [None]
  - PARAESTHESIA [None]
